FAERS Safety Report 24370680 (Version 1)
Quarter: 2024Q3

REPORT INFORMATION
  Report Type: Spontaneous
  Country: US (occurrence: US)
  Receive Date: 20240927
  Receipt Date: 20240927
  Transmission Date: 20241016
  Serious: No
  Sender: BRISTOL MYERS SQUIBB
  Company Number: US-BRISTOL-MYERS SQUIBB COMPANY-2024-153231

PATIENT
  Age: 71 Year
  Sex: Female
  Weight: 53.52 kg

DRUGS (1)
  1. POMALYST [Suspect]
     Active Substance: POMALIDOMIDE
     Indication: Plasma cell myeloma
     Dosage: FREQUENCY: ONCE DAILY IN THE EVENING FOR 21 DAYS OUT OF 28 DAY CYCLE.
     Route: 048

REACTIONS (1)
  - COVID-19 [Recovered/Resolved]
